FAERS Safety Report 6668614-6 (Version None)
Quarter: 2010Q2

REPORT INFORMATION
  Report Type: 
  Country: None (occurrence: None)
  Receive Date: 20100406
  Receipt Date: 20100329
  Transmission Date: 20101027
  Serious: Yes (Hospitalization)
  Sender: FDA-Public Use
  Company Number: PHEH2010US03358

PATIENT
  Sex: Male
  Weight: 115 kg

DRUGS (2)
  1. EXJADE [Suspect]
     Indication: MYELODYSPLASTIC SYNDROME
     Dosage: 1000 MG, BID
     Route: 048
     Dates: start: 20090812
  2. EXJADE [Suspect]
     Indication: IRON OVERLOAD

REACTIONS (1)
  - ACUTE MYELOID LEUKAEMIA [None]
